FAERS Safety Report 8572787-8 (Version None)
Quarter: 2012Q3

REPORT INFORMATION
  Report Type: 
  Country: None (occurrence: None)
  Receive Date: 20120806
  Receipt Date: 20120801
  Transmission Date: 20120928
  Serious: Yes (Other)
  Sender: FDA-Public Use
  Company Number: US-ROCHE-1096488

PATIENT
  Sex: Female

DRUGS (3)
  1. ACTONEL [Suspect]
     Indication: OSTEOPOROSIS
     Dates: start: 20030401, end: 20051201
  2. BONIVA [Suspect]
     Indication: OSTEOPOROSIS
     Dates: start: 20051201, end: 20111101
  3. FOSAMAX [Suspect]
     Indication: OSTEOPOROSIS
     Dates: start: 19960101, end: 20030401

REACTIONS (4)
  - FEMUR FRACTURE [None]
  - ANXIETY [None]
  - BONE DISORDER [None]
  - LOW TURNOVER OSTEOPATHY [None]
